FAERS Safety Report 25884303 (Version 1)
Quarter: 2025Q4

REPORT INFORMATION
  Report Type: Spontaneous
  Country: GB (occurrence: GB)
  Receive Date: 20251006
  Receipt Date: 20251006
  Transmission Date: 20260118
  Serious: Yes (Other)
  Sender: MYLAN
  Company Number: GB-MHRA-TPP45991371C31523651YC1758040523899

PATIENT
  Age: 79 Year
  Sex: Female
  Weight: 69 kg

DRUGS (20)
  1. DOXYCYCLINE [Suspect]
     Active Substance: DOXYCYCLINE
     Indication: Ill-defined disorder
     Dosage: 100 MILLIGRAM, (TWO CAPSULES ON THE FIRST DAY, THEN ONE DAILY)
     Dates: start: 20250911, end: 20250916
  2. DOXYCYCLINE [Suspect]
     Active Substance: DOXYCYCLINE
     Dosage: 100 MILLIGRAM, (TWO CAPSULES ON THE FIRST DAY, THEN ONE DAILY)
     Route: 065
     Dates: start: 20250911, end: 20250916
  3. DOXYCYCLINE [Suspect]
     Active Substance: DOXYCYCLINE
     Dosage: 100 MILLIGRAM, (TWO CAPSULES ON THE FIRST DAY, THEN ONE DAILY)
     Route: 065
     Dates: start: 20250911, end: 20250916
  4. DOXYCYCLINE [Suspect]
     Active Substance: DOXYCYCLINE
     Dosage: 100 MILLIGRAM, (TWO CAPSULES ON THE FIRST DAY, THEN ONE DAILY)
     Dates: start: 20250911, end: 20250916
  5. ESTRIOL [Concomitant]
     Active Substance: ESTRIOL
     Indication: Ill-defined disorder
     Dosage: UNK, PM (APPLY AT NIGHT ONCE DAILY FOR 2 WEEKS UNTIL SYM...)
     Dates: start: 20250903
  6. ESTRIOL [Concomitant]
     Active Substance: ESTRIOL
     Dosage: UNK, PM (APPLY AT NIGHT ONCE DAILY FOR 2 WEEKS UNTIL SYM...)
     Route: 065
     Dates: start: 20250903
  7. ESTRIOL [Concomitant]
     Active Substance: ESTRIOL
     Dosage: UNK, PM (APPLY AT NIGHT ONCE DAILY FOR 2 WEEKS UNTIL SYM...)
     Route: 065
     Dates: start: 20250903
  8. ESTRIOL [Concomitant]
     Active Substance: ESTRIOL
     Dosage: UNK, PM (APPLY AT NIGHT ONCE DAILY FOR 2 WEEKS UNTIL SYM...)
     Dates: start: 20250903
  9. HYDROCORTISONE [Concomitant]
     Active Substance: HYDROCORTISONE
     Indication: Ill-defined disorder
     Dosage: UNK, BID (APPLY TWICE DAILY FOR 7 DAYS)
     Dates: start: 20250903, end: 20250910
  10. HYDROCORTISONE [Concomitant]
     Active Substance: HYDROCORTISONE
     Dosage: UNK, BID (APPLY TWICE DAILY FOR 7 DAYS)
     Route: 065
     Dates: start: 20250903, end: 20250910
  11. HYDROCORTISONE [Concomitant]
     Active Substance: HYDROCORTISONE
     Dosage: UNK, BID (APPLY TWICE DAILY FOR 7 DAYS)
     Route: 065
     Dates: start: 20250903, end: 20250910
  12. HYDROCORTISONE [Concomitant]
     Active Substance: HYDROCORTISONE
     Dosage: UNK, BID (APPLY TWICE DAILY FOR 7 DAYS)
     Dates: start: 20250903, end: 20250910
  13. Hydromol [Concomitant]
     Indication: Ill-defined disorder
     Dosage: UNK, PRN (USE AS DIRECTED AS SOAP SUBSTITUTE AND MOISTURISER)
  14. Hydromol [Concomitant]
     Dosage: UNK, PRN (USE AS DIRECTED AS SOAP SUBSTITUTE AND MOISTURISER)
     Route: 065
  15. Hydromol [Concomitant]
     Dosage: UNK, PRN (USE AS DIRECTED AS SOAP SUBSTITUTE AND MOISTURISER)
     Route: 065
  16. Hydromol [Concomitant]
     Dosage: UNK, PRN (USE AS DIRECTED AS SOAP SUBSTITUTE AND MOISTURISER)
  17. CLARITHROMYCIN [Concomitant]
     Active Substance: CLARITHROMYCIN
     Indication: Ill-defined disorder
     Dosage: 1 DOSAGE FORM, BID (TAKE ONE TWICE DAILY FOR 5 DAYS)
     Dates: start: 20250908, end: 20250913
  18. CLARITHROMYCIN [Concomitant]
     Active Substance: CLARITHROMYCIN
     Dosage: 1 DOSAGE FORM, BID (TAKE ONE TWICE DAILY FOR 5 DAYS)
     Route: 065
     Dates: start: 20250908, end: 20250913
  19. CLARITHROMYCIN [Concomitant]
     Active Substance: CLARITHROMYCIN
     Dosage: 1 DOSAGE FORM, BID (TAKE ONE TWICE DAILY FOR 5 DAYS)
     Route: 065
     Dates: start: 20250908, end: 20250913
  20. CLARITHROMYCIN [Concomitant]
     Active Substance: CLARITHROMYCIN
     Dosage: 1 DOSAGE FORM, BID (TAKE ONE TWICE DAILY FOR 5 DAYS)
     Dates: start: 20250908, end: 20250913

REACTIONS (1)
  - Photopsia [Recovered/Resolved]
